FAERS Safety Report 8520179-X (Version None)
Quarter: 2012Q3

REPORT INFORMATION
  Report Type: 
  Country: None (occurrence: None)
  Receive Date: 20120705
  Receipt Date: 20120621
  Transmission Date: 20120928
  Serious: Yes (Hospitalization)
  Sender: FDA-Public Use
  Company Number: 2012SP034437

PATIENT
  Age: 63 Year
  Sex: Female

DRUGS (7)
  1. PEG-INTRON [Suspect]
     Indication: PRODUCT USED FOR UNKNOWN INDICATION
     Dosage: 100 MCG;QW;
  2. INSULIN [Concomitant]
  3. METHYLDOPA [Concomitant]
  4. VICTRELIS [Suspect]
     Indication: CHRONIC HEPATITIS
     Dosage: QD;PO
     Route: 048
     Dates: start: 20120515
  5. REBETOL [Suspect]
     Indication: PRODUCT USED FOR UNKNOWN INDICATION
     Dosage: 5 SF;QD;4 DF; QD; 2 DF; QD
  6. CONCOR [Concomitant]
  7. INDAPAMIDE [Concomitant]

REACTIONS (3)
  - ANAEMIA [None]
  - CONFUSIONAL STATE [None]
  - HYPERTENSION [None]
